FAERS Safety Report 10654016 (Version 3)
Quarter: 2015Q1

REPORT INFORMATION
  Report Type: Spontaneous
  Country: IT (occurrence: IT)
  Receive Date: 20141216
  Receipt Date: 20150302
  Transmission Date: 20150720
  Serious: Yes (Hospitalization)
  Sender: FDA-Public Use
  Company Number: IT-RANBAXY-2014RR-90139

PATIENT
  Age: 2 Year
  Sex: Male

DRUGS (1)
  1. AMOXICILLINE [Suspect]
     Active Substance: AMOXICILLIN
     Indication: BACTERIAL INFECTION
     Dosage: 1 DF, DAILY
     Route: 048
     Dates: start: 20141126, end: 20141128

REACTIONS (2)
  - Nephrotic syndrome [Recovering/Resolving]
  - Gait disturbance [None]

NARRATIVE: CASE EVENT DATE: 20141128
